FAERS Safety Report 15534906 (Version 6)
Quarter: 2022Q1

REPORT INFORMATION
  Report Type: Spontaneous
  Country: US (occurrence: US)
  Receive Date: 20181022
  Receipt Date: 20220317
  Transmission Date: 20220423
  Serious: No
  Sender: FDA-Public Use
  Company Number: US-BIOGEN-2018BI00595589

PATIENT
  Sex: Female

DRUGS (3)
  1. PLEGRIDY [Suspect]
     Active Substance: PEGINTERFERON BETA-1A
     Indication: Multiple sclerosis
     Route: 050
  2. PLEGRIDY [Suspect]
     Active Substance: PEGINTERFERON BETA-1A
     Route: 050
     Dates: start: 20160224, end: 2018
  3. PLEGRIDY [Suspect]
     Active Substance: PEGINTERFERON BETA-1A
     Route: 065
     Dates: start: 20190619

REACTIONS (18)
  - Drug ineffective [Unknown]
  - Infection [Unknown]
  - Feeling abnormal [Unknown]
  - Illness [Unknown]
  - Skin laceration [Unknown]
  - Vasculitis [Unknown]
  - Oropharyngeal pain [Unknown]
  - Lymphadenopathy [Unknown]
  - Respiratory disorder [Unknown]
  - Bronchitis chronic [Unknown]
  - Urinary tract infection [Unknown]
  - Irritability [Unknown]
  - Central nervous system lesion [Unknown]
  - Multiple sclerosis [Unknown]
  - Multiple sclerosis relapse [Recovered/Resolved]
  - Hypersensitivity [Unknown]
  - Injection site reaction [Unknown]
  - Pyrexia [Unknown]

NARRATIVE: CASE EVENT DATE: 20160101
